FAERS Safety Report 24136603 (Version 1)
Quarter: 2024Q3

REPORT INFORMATION
  Report Type: Spontaneous
  Country: IT (occurrence: IT)
  Receive Date: 20240725
  Receipt Date: 20240725
  Transmission Date: 20241016
  Serious: Yes (Hospitalization, Other)
  Sender: HIKMA
  Company Number: IT-MLMSERVICE-20240708-PI126636-00306-1

PATIENT
  Age: 28 Year
  Sex: Female

DRUGS (12)
  1. HYDROXYCHLOROQUINE [Suspect]
     Active Substance: HYDROXYCHLOROQUINE
     Indication: Immunosuppressant drug therapy
     Dosage: UNK
     Route: 042
  2. METHYLPREDNISOLONE [Suspect]
     Active Substance: METHYLPREDNISOLONE
     Indication: Immunosuppressant drug therapy
     Dosage: BOLUSES
     Route: 042
     Dates: start: 201712
  3. METHYLPREDNISOLONE [Suspect]
     Active Substance: METHYLPREDNISOLONE
     Dosage: BOLUSES INDUCTION CYCLE
     Route: 042
     Dates: start: 202007
  4. MYCOPHENOLATE MOFETIL [Suspect]
     Active Substance: MYCOPHENOLATE MOFETIL
     Indication: Immunosuppressant drug therapy
     Dosage: UNK
     Route: 065
     Dates: start: 2013, end: 2017
  5. MYCOPHENOLATE MOFETIL [Suspect]
     Active Substance: MYCOPHENOLATE MOFETIL
     Dosage: ENHANCED THERAPY
     Route: 065
     Dates: start: 202007, end: 202011
  6. MYCOPHENOLATE MOFETIL [Suspect]
     Active Substance: MYCOPHENOLATE MOFETIL
     Dosage: GRADUAL AUGMENTATION
     Route: 065
     Dates: start: 2017
  7. MYCOPHENOLATE MOFETIL [Suspect]
     Active Substance: MYCOPHENOLATE MOFETIL
     Dosage: NEW INDUCTION CYCLE
     Route: 065
     Dates: start: 2019
  8. PREDNISONE [Suspect]
     Active Substance: PREDNISONE
     Indication: Immunosuppressant drug therapy
     Dosage: INDUCTION CYCLE
     Route: 065
     Dates: start: 2019
  9. TACROLIMUS [Suspect]
     Active Substance: TACROLIMUS
     Dosage: ENHANCED THERAPY
     Route: 065
     Dates: start: 202007, end: 202011
  10. TACROLIMUS [Suspect]
     Active Substance: TACROLIMUS
     Dosage: GRADUAL AUGMENTATION
     Route: 065
     Dates: start: 2017
  11. TACROLIMUS [Suspect]
     Active Substance: TACROLIMUS
     Indication: Immunosuppressant drug therapy
     Dosage: INDUCTION CYCLE
     Route: 065
     Dates: start: 2013, end: 2017
  12. TACROLIMUS [Suspect]
     Active Substance: TACROLIMUS
     Dosage: NEW INDUCTION CYCLE
     Route: 065
     Dates: start: 2019

REACTIONS (4)
  - Pleural effusion [Recovered/Resolved]
  - Nephritis [Recovered/Resolved]
  - COVID-19 pneumonia [Recovered/Resolved]
  - Respiratory failure [Recovered/Resolved]

NARRATIVE: CASE EVENT DATE: 20201029
